FAERS Safety Report 13128824 (Version 3)
Quarter: 2017Q4

REPORT INFORMATION
  Report Type: Spontaneous
  Country: US (occurrence: US)
  Receive Date: 20170119
  Receipt Date: 20171023
  Transmission Date: 20180320
  Serious: No
  Sender: FDA-Public Use
  Company Number: PHEH2017US001732

PATIENT
  Age: 56 Year
  Sex: Female

DRUGS (2)
  1. VOTRIENT [Suspect]
     Active Substance: PAZOPANIB HYDROCHLORIDE
     Dosage: 2 DF, UNK (DAILY FOR TWO WEEKS ON, THEN ONE WEEK OFF)
     Route: 048
     Dates: start: 20161020, end: 20170828
  2. VOTRIENT [Suspect]
     Active Substance: PAZOPANIB HYDROCHLORIDE
     Indication: MALAISE
     Dosage: 3 DF, QD
     Route: 048
     Dates: start: 20161019

REACTIONS (7)
  - Diarrhoea [Unknown]
  - Alopecia [Unknown]
  - Blood pressure increased [Unknown]
  - Night sweats [Unknown]
  - Hair colour changes [Unknown]
  - Drug ineffective [Unknown]
  - Product use in unapproved indication [Unknown]

NARRATIVE: CASE EVENT DATE: 20161019
